FAERS Safety Report 11509278 (Version 2)
Quarter: 2015Q4

REPORT INFORMATION
  Report Type: Spontaneous
  Country: US (occurrence: US)
  Receive Date: 20150915
  Receipt Date: 20151015
  Transmission Date: 20160304
  Serious: Yes (Other)
  Sender: FDA-Public Use
  Company Number: US-ROXANE LABORATORIES, INC.-2015-RO-01531RO

PATIENT
  Age: 60 Year
  Sex: Male

DRUGS (1)
  1. LOSARTAN POTASSIUM USP [Suspect]
     Active Substance: LOSARTAN POTASSIUM
     Indication: HYPERTENSION
     Dosage: 100 MG
     Route: 048
     Dates: start: 201508

REACTIONS (3)
  - Product quality issue [Unknown]
  - Malaise [Recovered/Resolved]
  - Drug ineffective [Recovered/Resolved]

NARRATIVE: CASE EVENT DATE: 20150905
